FAERS Safety Report 7233139-6 (Version None)
Quarter: 2011Q1

REPORT INFORMATION
  Report Type: 
  Country: None (occurrence: None)
  Receive Date: 20110119
  Receipt Date: 20110108
  Transmission Date: 20110831
  Serious: No
  Sender: FDA-Public Use
  Company Number: US-B.I. PHARMACEUTICALS,INC./RIDGEFIELD-2011-BP-00771BP

PATIENT
  Age: 84 Year
  Sex: Male

DRUGS (3)
  1. MULTIVITAMIN [Concomitant]
     Indication: VITAMIN SUPPLEMENTATION
  2. TIZANIDINE [Concomitant]
     Indication: MUSCLE RELAXANT THERAPY
  3. PRADAXA [Suspect]
     Indication: ATRIAL FIBRILLATION
     Dosage: 300 MG
     Route: 048
     Dates: start: 20101220

REACTIONS (2)
  - OESOPHAGEAL PAIN [None]
  - INSOMNIA [None]
